FAERS Safety Report 5422145-X (Version None)
Quarter: 2007Q3

REPORT INFORMATION
  Report Type: 
  Country: None (occurrence: None)
  Receive Date: 20070820
  Receipt Date: 20070806
  Transmission Date: 20080115
  Serious: Yes (Death)
  Sender: FDA-Public Use
  Company Number: 159819ISR

PATIENT
  Age: 32 Year
  Sex: Male

DRUGS (1)
  1. ENALAPRIL [Suspect]
     Indication: HYPERTENSION
     Dosage: ORAL
     Route: 048

REACTIONS (20)
  - ALBUMIN URINE PRESENT [None]
  - BLOOD LACTATE DEHYDROGENASE INCREASED [None]
  - BRAIN HERNIATION [None]
  - BRONCHOPNEUMONIA [None]
  - CEREBRAL INFARCTION [None]
  - CONFUSIONAL STATE [None]
  - EYE PAIN [None]
  - GENERAL PHYSICAL HEALTH DETERIORATION [None]
  - GRIMACING [None]
  - HYPERHIDROSIS [None]
  - HYPERTENSION [None]
  - LEFT VENTRICULAR HYPERTROPHY [None]
  - LEUKOCYTOSIS [None]
  - LEUKOENCEPHALOMYELITIS [None]
  - MUSCLE SPASMS [None]
  - TACHYCARDIA [None]
  - TACHYPNOEA [None]
  - TRISMUS [None]
  - URINARY INCONTINENCE [None]
  - VASCULITIS CEREBRAL [None]
